FAERS Safety Report 20055902 (Version 7)
Quarter: 2022Q1

REPORT INFORMATION
  Report Type: Report from Study
  Country: US (occurrence: None)
  Receive Date: 20211111
  Receipt Date: 20220330
  Transmission Date: 20220423
  Serious: Yes (Other)
  Sender: FDA-Public Use
  Company Number: US-ROCHE-2632231

PATIENT
  Age: 74 Year
  Sex: Female
  Weight: 73 kg

DRUGS (53)
  1. RANIBIZUMAB [Suspect]
     Active Substance: RANIBIZUMAB
     Indication: Diabetic retinal oedema
     Dosage: DOSE: 100 MG/ML FREQUENCY: Q24W?DATE OF MOST RECENT DOSE OF STUDY EYE RANIBIZUMAB (10 MG/ML) PRIOR T
     Route: 050
     Dates: start: 20200217
  2. RANIBIZUMAB [Suspect]
     Active Substance: RANIBIZUMAB
  3. RANIBIZUMAB [Suspect]
     Active Substance: RANIBIZUMAB
  4. RANIBIZUMAB [Suspect]
     Active Substance: RANIBIZUMAB
  5. RANIBIZUMAB [Suspect]
     Active Substance: RANIBIZUMAB
  6. RANIBIZUMAB [Concomitant]
     Active Substance: RANIBIZUMAB
     Dosage: DATE OF MOST RECENT DOSE OF SPONSOR SUPPLIED FELLOW EYE RANIBIZUMAB (6 MG/ML) FOR INTRAVITREAL INJEC
     Route: 050
     Dates: start: 20200217
  7. METFORMIN [Concomitant]
     Active Substance: METFORMIN HYDROCHLORIDE
     Indication: Type 2 diabetes mellitus
     Route: 048
     Dates: start: 2000
  8. ATORVASTATIN [Concomitant]
     Active Substance: ATORVASTATIN
     Indication: Hypercholesterolaemia
     Dates: start: 2015
  9. AMLODIPINE [Concomitant]
     Active Substance: AMLODIPINE BESYLATE
     Indication: Hypertension
     Dates: start: 2015
  10. GABAPENTIN [Concomitant]
     Active Substance: GABAPENTIN
     Indication: Neuropathy peripheral
     Dates: start: 2015
  11. GLIMEPIRIDE [Concomitant]
     Active Substance: GLIMEPIRIDE
     Indication: Type 2 diabetes mellitus
     Dates: start: 2011
  12. NYSTATIN [Concomitant]
     Active Substance: NYSTATIN
     Indication: Onychomycosis
     Dates: start: 2019
  13. VITAMIN C [Concomitant]
     Active Substance: ASCORBIC ACID
     Dates: start: 20200406, end: 20210601
  14. VITAMIN C [Concomitant]
     Active Substance: ASCORBIC ACID
     Dates: start: 20210602
  15. FERROUS SULFATE [Concomitant]
     Active Substance: FERROUS SULFATE
     Dates: start: 20200507
  16. PROGESTERONE [Concomitant]
     Active Substance: PROGESTERONE
     Indication: Osteoarthritis
     Dates: start: 20200628, end: 20200705
  17. TOBRADEX [Concomitant]
     Active Substance: DEXAMETHASONE\TOBRAMYCIN
     Indication: Lacrimation increased
     Dates: start: 20200616, end: 20200625
  18. TOBRADEX [Concomitant]
     Active Substance: DEXAMETHASONE\TOBRAMYCIN
     Dates: start: 20200701, end: 20200705
  19. TOBRADEX [Concomitant]
     Active Substance: DEXAMETHASONE\TOBRAMYCIN
     Dates: start: 20200608, end: 20200608
  20. TOBRADEX [Concomitant]
     Active Substance: DEXAMETHASONE\TOBRAMYCIN
     Dates: start: 20200706, end: 20200720
  21. DECADRON [Concomitant]
     Active Substance: DEXAMETHASONE
     Indication: Prophylaxis
     Dates: start: 20200606, end: 20200609
  22. CEFAZOLIN [Concomitant]
     Active Substance: CEFAZOLIN
     Indication: Infection prophylaxis
     Dates: start: 20200609, end: 20200609
  23. VITAMIN B12 [Concomitant]
     Active Substance: CYANOCOBALAMIN
     Indication: Vitamin B12 deficiency
     Dates: start: 20200507, end: 20200604
  24. VITAMIN B12 [Concomitant]
     Active Substance: CYANOCOBALAMIN
     Dosage: GENERAL HEALTH
     Dates: start: 20210513
  25. NAPROXEN [Concomitant]
     Active Substance: NAPROXEN
     Indication: Osteoarthritis
     Dates: start: 20200504, end: 20200601
  26. NAPROXEN [Concomitant]
     Active Substance: NAPROXEN
     Dates: start: 20200616
  27. NITROFURANTOIN MONOHYDRATE MACROCRYSTALS [Concomitant]
     Active Substance: NITROFURANTOIN\NITROFURANTOIN MONOHYDRATE
     Indication: Urinary tract infection
     Dates: start: 20201021, end: 20201027
  28. HYDROCHLOROTHIAZIDE [Concomitant]
     Active Substance: HYDROCHLOROTHIAZIDE
     Indication: Oedema peripheral
     Dates: start: 20201008, end: 20201106
  29. CIPROFLOXACIN [Concomitant]
     Active Substance: CIPROFLOXACIN
     Indication: Infection prophylaxis
     Dates: start: 20201130, end: 20201204
  30. CIPROFLOXACIN [Concomitant]
     Active Substance: CIPROFLOXACIN
     Indication: Urinary tract infection
     Dates: start: 20211221, end: 20211231
  31. CIPROFLOXACIN [Concomitant]
     Active Substance: CIPROFLOXACIN
     Dates: start: 20210510, end: 20210513
  32. CIPROFLOXACIN [Concomitant]
     Active Substance: CIPROFLOXACIN
     Dates: start: 20211027, end: 20211030
  33. BENAZEPRIL AND HYDROCHLOROTHIAZIDE [Concomitant]
     Active Substance: BENAZEPRIL HYDROCHLORIDE\HYDROCHLOROTHIAZIDE
     Indication: Hypertension
     Dates: start: 20201209, end: 20210513
  34. AMILORIDE [Concomitant]
     Active Substance: AMILORIDE
     Indication: Hypertension
     Dates: start: 20201209, end: 20210513
  35. FLAXSEED [Concomitant]
     Active Substance: FLAX SEED
     Dates: start: 202012
  36. CALCIUM [Concomitant]
     Active Substance: CALCIUM
     Dates: start: 20200507
  37. MELOXICAM [Concomitant]
     Active Substance: MELOXICAM
     Indication: Osteoarthritis
     Dates: start: 20210126
  38. METHYLPREDNISOLONE [Concomitant]
     Active Substance: METHYLPREDNISOLONE
     Indication: Osteoarthritis
     Dates: start: 20210303, end: 20210308
  39. FERROUS SULFATE [Concomitant]
     Active Substance: FERROUS SULFATE
     Indication: Renal failure
     Dates: start: 20210425
  40. FERROUS SULFATE [Concomitant]
     Active Substance: FERROUS SULFATE
     Dates: start: 20210824, end: 20210921
  41. IRON [Concomitant]
     Active Substance: IRON
     Indication: Acute kidney injury
     Route: 065
     Dates: start: 20210425, end: 20210428
  42. NITROFURANTOIN [Concomitant]
     Active Substance: NITROFURANTOIN
     Indication: Urinary tract infection
     Dates: start: 20210401, end: 20210406
  43. VITAMIN D3 [Concomitant]
     Active Substance: CHOLECALCIFEROL
  44. SYSTANE (HYPROMELLOSE 2910 (4000 MPA.S)) [Concomitant]
     Active Substance: HYPROMELLOSE 2910 (4000 MPA.S)
     Indication: Dry eye
     Dates: start: 2018
  45. METOPROLOL [Concomitant]
     Active Substance: METOPROLOL
     Indication: Hypertension
     Dates: start: 20210513
  46. OMEPRAZOLE [Concomitant]
     Active Substance: OMEPRAZOLE
     Dates: start: 20211103, end: 20220216
  47. FAMOTIDINE [Concomitant]
     Active Substance: FAMOTIDINE
     Dates: start: 20211103
  48. MUPIROCIN [Concomitant]
     Active Substance: MUPIROCIN
     Indication: Gastrooesophageal reflux disease
     Dates: start: 20211103, end: 20211109
  49. OXYMETAZOLINE HYDROCHLORIDE [Concomitant]
     Active Substance: OXYMETAZOLINE HYDROCHLORIDE
     Indication: Gastrooesophageal reflux disease
     Dates: start: 20211110
  50. FIBERCON [Concomitant]
     Active Substance: CALCIUM POLYCARBOPHIL
     Dates: start: 20211212
  51. ESTRADIOL [Concomitant]
     Active Substance: ESTRADIOL
     Indication: Vulvovaginal discomfort
     Dates: start: 20220125
  52. NEOCELL SUPERCOLLAGEN+C [Concomitant]
     Dates: start: 202012
  53. SULFAMETHOXAZOLE [Concomitant]
     Active Substance: SULFAMETHOXAZOLE
     Indication: Urinary tract infection
     Dates: start: 20220218, end: 20220221

REACTIONS (2)
  - Conjunctival erosion [Not Recovered/Not Resolved]
  - Conjunctival bleb [Recovered/Resolved]

NARRATIVE: CASE EVENT DATE: 20200625
